FAERS Safety Report 22298518 (Version 1)
Quarter: 2023Q2

REPORT INFORMATION
  Report Type: Report from Study
  Country: US (occurrence: US)
  Receive Date: 20230509
  Receipt Date: 20230509
  Transmission Date: 20230722
  Serious: Yes (Hospitalization)
  Sender: FDA-Public Use
  Company Number: US-JNJFOC-20230500972

PATIENT
  Age: 6 Decade
  Sex: Male

DRUGS (6)
  1. SPRAVATO [Suspect]
     Active Substance: ESKETAMINE
     Indication: Depression
     Dosage: TOTAL 1 DOSE
     Dates: start: 20200123, end: 20200123
  2. SPRAVATO [Suspect]
     Active Substance: ESKETAMINE
     Dosage: TOTAL 5 DOSES
     Dates: start: 20200127, end: 20200211
  3. SPRAVATO [Suspect]
     Active Substance: ESKETAMINE
     Dosage: TOTAL 1 DOSES
     Dates: start: 20200214, end: 20200214
  4. SPRAVATO [Suspect]
     Active Substance: ESKETAMINE
     Dosage: TOTAL 66 DOSES
     Dates: start: 20200220, end: 20210819
  5. SPRAVATO [Suspect]
     Active Substance: ESKETAMINE
     Dosage: TOTAL 1 DOSES
     Dates: start: 20210831, end: 20210831
  6. SPRAVATO [Suspect]
     Active Substance: ESKETAMINE
     Dosage: TOTAL 60 DOSES
     Dates: start: 20210903, end: 20230206

REACTIONS (1)
  - Fall [Unknown]
